FAERS Safety Report 6759423-8 (Version None)
Quarter: 2010Q2

REPORT INFORMATION
  Report Type: 
  Country: None (occurrence: None)
  Receive Date: 20100602
  Receipt Date: 20100518
  Transmission Date: 20101027
  Serious: Yes (Other)
  Sender: FDA-Public Use
  Company Number: 2010AP001042

PATIENT
  Age: 61 Year
  Sex: Male

DRUGS (6)
  1. CIPROFLOXACIN [Suspect]
     Indication: DRUG USE FOR UNKNOWN INDICATION
  2. VENLAFAXINE HYDROCHLORIDE [Suspect]
     Indication: MAJOR DEPRESSION
     Dosage: 75 MG;BID; 100 MG;BID
  3. METHADONE [Suspect]
     Indication: BACK PAIN
  4. HYDROMORPHONE [Concomitant]
  5. OXYCODONE [Concomitant]
  6. METOCLOPRAMIDE [Concomitant]

REACTIONS (6)
  - ANXIETY [None]
  - CEREBRAL ISCHAEMIA [None]
  - CONDITION AGGRAVATED [None]
  - DRUG INTERACTION [None]
  - FALL [None]
  - SEROTONIN SYNDROME [None]
